FAERS Safety Report 16624241 (Version 1)
Quarter: 2019Q3

REPORT INFORMATION
  Report Type: Spontaneous
  Country: CA (occurrence: CA)
  Receive Date: 20190724
  Receipt Date: 20190724
  Transmission Date: 20191004
  Serious: Yes (Hospitalization)
  Sender: FDA-Public Use
  Company Number: CA-TEVA-2019-CA-1082361

PATIENT
  Age: 42 Year
  Sex: Male

DRUGS (8)
  1. CODEINE [Suspect]
     Active Substance: CODEINE
     Indication: INTENTIONAL OVERDOSE
     Route: 048
  2. DIPHENHYDRAMINE HYDROCHLORIDE. [Suspect]
     Active Substance: DIPHENHYDRAMINE HYDROCHLORIDE
     Indication: INTENTIONAL OVERDOSE
     Dosage: 600 MILLIGRAM
     Route: 048
  3. ACETAMINOPHEN. [Suspect]
     Active Substance: ACETAMINOPHEN
     Indication: INTENTIONAL OVERDOSE
     Dosage: 24000 MILLIGRAM
     Route: 048
  4. LORAZEPAM. [Suspect]
     Active Substance: LORAZEPAM
     Indication: INTENTIONAL OVERDOSE
     Dosage: 8 MILLIGRAM
     Route: 048
  5. NAPROXEN. [Suspect]
     Active Substance: NAPROXEN
     Indication: INTENTIONAL OVERDOSE
     Route: 065
  6. DIPHENHYDRAMINE. [Suspect]
     Active Substance: DIPHENHYDRAMINE
     Indication: INTENTIONAL OVERDOSE
     Dosage: 600 MILLIGRAM
     Route: 048
  7. XARELTO [Suspect]
     Active Substance: RIVAROXABAN
     Indication: INTENTIONAL OVERDOSE
     Dosage: 1400 MILLIGRAM
     Route: 048
  8. NAPROXEN SODIUM. [Suspect]
     Active Substance: NAPROXEN SODIUM
     Indication: INTENTIONAL OVERDOSE
     Route: 048

REACTIONS (5)
  - Intentional overdose [Recovered/Resolved]
  - Activated partial thromboplastin time prolonged [Recovered/Resolved]
  - Prothrombin time prolonged [Recovered/Resolved]
  - International normalised ratio increased [Recovered/Resolved]
  - Overdose [Recovered/Resolved]
